FAERS Safety Report 22196520 (Version 1)
Quarter: 2023Q2

REPORT INFORMATION
  Report Type: Report from Study
  Country: US (occurrence: US)
  Receive Date: 20230411
  Receipt Date: 20230411
  Transmission Date: 20230721
  Serious: Yes (Life-Threatening, Hospitalization, Disabling, Congenital Anomaly)
  Sender: FDA-Public Use
  Company Number: US-drreddys-SPO/USA/23/0163243

PATIENT
  Age: 24 Month
  Sex: Female

DRUGS (1)
  1. SAPROPTERIN DIHYDROCHLORIDE [Suspect]
     Active Substance: SAPROPTERIN DIHYDROCHLORIDE
     Indication: Tetrahydrobiopterin deficiency
     Route: 048
     Dates: start: 20221019

REACTIONS (2)
  - Movement disorder [Not Recovered/Not Resolved]
  - Hospice care [Not Recovered/Not Resolved]
